FAERS Safety Report 7965522-5 (Version None)
Quarter: 2011Q4

REPORT INFORMATION
  Report Type: 
  Country: None (occurrence: None)
  Receive Date: 20111208
  Receipt Date: 20111128
  Transmission Date: 20120403
  Serious: Yes (Hospitalization)
  Sender: FDA-Public Use
  Company Number: JP-JNJFOC-20111200273

PATIENT
  Age: 51 Year
  Sex: Female
  Weight: 52 kg

DRUGS (16)
  1. REMICADE [Suspect]
     Route: 042
     Dates: start: 20110706
  2. TACROLIMUS [Suspect]
     Indication: COLITIS ULCERATIVE
     Dates: start: 20101010
  3. ADALIMUMAB [Suspect]
     Indication: PRODUCT USED FOR UNKNOWN INDICATION
     Dates: start: 20090427, end: 20090911
  4. REMICADE [Suspect]
     Route: 042
     Dates: start: 20101110
  5. ACTONEL [Concomitant]
  6. PREDNISOLONE [Concomitant]
     Indication: COLITIS ULCERATIVE
     Dates: start: 20110112
  7. PREDNISOLONE [Concomitant]
     Dates: start: 20101208, end: 20110111
  8. PREDNISOLONE [Concomitant]
     Dates: start: 20100930, end: 20101207
  9. TACROLIMUS [Suspect]
     Dates: start: 20091010, end: 20101019
  10. ASACOL [Concomitant]
     Indication: COLITIS ULCERATIVE
     Dates: start: 20100901
  11. REMICADE [Suspect]
     Indication: COLITIS ULCERATIVE
     Route: 042
     Dates: start: 20110519
  12. REMICADE [Suspect]
     Route: 042
     Dates: start: 20101027
  13. IMURAN [Suspect]
     Indication: COLITIS ULCERATIVE
     Dates: start: 20101117, end: 20110331
  14. CYCLOSPORINE [Suspect]
     Indication: PRODUCT USED FOR UNKNOWN INDICATION
     Dates: start: 20091005, end: 20091018
  15. REMICADE [Suspect]
     Route: 042
     Dates: start: 20110209
  16. REMICADE [Suspect]
     Route: 042
     Dates: start: 20101208

REACTIONS (2)
  - ENDOMETRIAL CANCER [None]
  - HERPES ZOSTER [None]
